FAERS Safety Report 6655292-5 (Version None)
Quarter: 2010Q1

REPORT INFORMATION
  Report Type: 
  Country: None (occurrence: None)
  Receive Date: 20100324
  Receipt Date: 20100304
  Transmission Date: 20100710
  Serious: Yes (Other)
  Sender: FDA-Public Use
  Company Number: JP-SOLVAY-00310000852

PATIENT
  Age: 30 Year
  Sex: Male

DRUGS (3)
  1. LUVOX [Suspect]
     Dosage: 5200 MILLIGRAM(S), SORAL
     Route: 048
  2. PAROXETINE HCL [Suspect]
     Indication: INTENTIONAL OVERDOSE
     Dosage: 680 MILLIGRAM(S), ORAL
     Route: 048
  3. PAROXETINE HCL [Suspect]
     Indication: OBSESSIVE-COMPULSIVE DISORDER
     Dosage: 680 MILLIGRAM(S), ORAL
     Route: 048

REACTIONS (3)
  - INTENTIONAL OVERDOSE [None]
  - SEROTONIN SYNDROME [None]
  - SUICIDE ATTEMPT [None]
